FAERS Safety Report 8772743 (Version 1)
Quarter: 2012Q4

REPORT INFORMATION
  Report Type: 
  Country: DE (occurrence: DE)
  Receive Date: 20120907
  Receipt Date: 20120907
  Transmission Date: 20130627
  Serious: Yes (Life-Threatening)
  Sender: FDA-Public Use
  Company Number: DE-UCBSA-064802

PATIENT
  Age: 53 Year
  Sex: Male

DRUGS (3)
  1. KEPPRA [Suspect]
     Dosage: UNKNOWN
  2. KEPPRA [Suspect]
  3. CARBAMAZEPINE [Concomitant]
     Dosage: 200 MG

REACTIONS (4)
  - Skin exfoliation [Unknown]
  - Rash [Unknown]
  - Pruritus [Unknown]
  - Scratch [Unknown]
